FAERS Safety Report 25017906 (Version 1)
Quarter: 2025Q1

REPORT INFORMATION
  Report Type: Spontaneous
  Country: US (occurrence: US)
  Receive Date: 20250227
  Receipt Date: 20250227
  Transmission Date: 20250408
  Serious: Yes (Life-Threatening, Hospitalization)
  Sender: ALKERMES
  Company Number: US-ALKERMES INC.-ALK-2025-000447

PATIENT
  Age: 31 Year
  Sex: Male

DRUGS (1)
  1. VIVITROL [Suspect]
     Active Substance: NALTREXONE
     Indication: Drug dependence
     Route: 030

REACTIONS (2)
  - Mechanical ventilation [Unknown]
  - Product dose omission issue [None]

NARRATIVE: CASE EVENT DATE: 20241225
